FAERS Safety Report 7365834-2 (Version None)
Quarter: 2011Q1

REPORT INFORMATION
  Report Type: 
  Country: None (occurrence: None)
  Receive Date: 20110316
  Receipt Date: 20110316
  Transmission Date: 20110831
  Serious: Yes (Other)
  Sender: FDA-Public Use
  Company Number: None

PATIENT
  Age: 83 Year
  Sex: Female
  Weight: 67.586 kg

DRUGS (1)
  1. PANTOPRAZOLE SODIUM [Suspect]
     Indication: GASTROOESOPHAGEAL REFLUX DISEASE
     Dosage: 40MG QD PO
     Route: 048
     Dates: start: 20110215, end: 20110315

REACTIONS (5)
  - PRODUCT COUNTERFEIT [None]
  - CONDITION AGGRAVATED [None]
  - PRODUCT SUBSTITUTION ISSUE [None]
  - GASTROOESOPHAGEAL REFLUX DISEASE [None]
  - PRODUCT MEASURED POTENCY ISSUE [None]
